FAERS Safety Report 7833157-0 (Version None)
Quarter: 2011Q4

REPORT INFORMATION
  Report Type: 
  Country: None (occurrence: None)
  Receive Date: 20111024
  Receipt Date: 20110930
  Transmission Date: 20120403
  Serious: Yes (Other)
  Sender: FDA-Public Use
  Company Number: FR-JNJFOC-20111007584

PATIENT
  Sex: Female

DRUGS (8)
  1. AMOXICILLIN [Concomitant]
     Indication: LUNG DISORDER
     Route: 048
     Dates: start: 20110707, end: 20110715
  2. SECTRAL [Concomitant]
     Indication: HYPERTENSION
     Route: 048
     Dates: start: 20110705, end: 20110721
  3. CLAVULANATE POTASSIUM [Concomitant]
     Indication: PRODUCT USED FOR UNKNOWN INDICATION
     Route: 048
     Dates: start: 20110707, end: 20110715
  4. NICOTINE [Suspect]
     Indication: SMOKING CESSATION THERAPY
     Route: 003
     Dates: start: 20110405, end: 20110720
  5. NICOTINE [Suspect]
     Route: 003
  6. TERBUTALINE [Concomitant]
     Indication: BRONCHITIS
     Route: 055
     Dates: start: 20110705, end: 20110721
  7. IPRATROPIUM BROMIDE [Concomitant]
     Indication: CHRONIC OBSTRUCTIVE PULMONARY DISEASE
     Route: 055
     Dates: start: 20110705, end: 20110721
  8. LOVENOX [Concomitant]
     Indication: THROMBOSIS PROPHYLAXIS
     Route: 058
     Dates: start: 20110705, end: 20110720

REACTIONS (2)
  - URTICARIA [None]
  - FACE OEDEMA [None]
